FAERS Safety Report 4949314-7 (Version None)
Quarter: 2006Q1

REPORT INFORMATION
  Report Type: 
  Country: None (occurrence: None)
  Receive Date: 20060321
  Receipt Date: 20060313
  Transmission Date: 20060701
  Serious: Yes (Other)
  Sender: FDA-Public Use
  Company Number: TR-BRISTOL-MYERS SQUIBB COMPANY-13312269

PATIENT
  Age: 55 Year
  Sex: Female

DRUGS (4)
  1. IFOSFAMIDE [Suspect]
     Indication: DIFFUSE LARGE B-CELL LYMPHOMA
  2. MESNA [Suspect]
     Indication: PROPHYLAXIS
  3. ETOPOSIDE [Suspect]
     Indication: DIFFUSE LARGE B-CELL LYMPHOMA
  4. IDARUBICIN HCL [Suspect]
     Indication: DIFFUSE LARGE B-CELL LYMPHOMA

REACTIONS (11)
  - ALANINE AMINOTRANSFERASE INCREASED [None]
  - APHASIA [None]
  - ASPARTATE AMINOTRANSFERASE INCREASED [None]
  - BLOOD ALKALINE PHOSPHATASE INCREASED [None]
  - BLOOD BILIRUBIN INCREASED [None]
  - CONFUSIONAL STATE [None]
  - FEBRILE NEUTROPENIA [None]
  - GAMMA-GLUTAMYLTRANSFERASE INCREASED [None]
  - HYDROPNEUMOTHORAX [None]
  - LETHARGY [None]
  - STATUS EPILEPTICUS [None]
